FAERS Safety Report 11138689 (Version 2)
Quarter: 2015Q2

REPORT INFORMATION
  Report Type: Other
  Country: JP (occurrence: JP)
  Receive Date: 20150527
  Receipt Date: 20150605
  Transmission Date: 20150821
  Serious: Yes (Disabling, Other)
  Sender: FDA-Public Use
  Company Number: JP-TAKEDA-TCI2008A00794

PATIENT
  Age: 53 Year
  Sex: Female

DRUGS (4)
  1. CEFSPAN [Suspect]
     Active Substance: CEFIXIME
     Indication: PRODUCT USED FOR UNKNOWN INDICATION
     Dosage: UNK
     Route: 048
  2. BUFFERIN A [Suspect]
     Active Substance: ASPIRIN
     Indication: PRODUCT USED FOR UNKNOWN INDICATION
     Dosage: UNK
     Route: 048
  3. FROBEN [Suspect]
     Active Substance: FLURBIPROFEN
     Indication: PRODUCT USED FOR UNKNOWN INDICATION
     Dosage: UNK
     Route: 048
  4. TAKEPRON CAPSULES 15 [Suspect]
     Active Substance: LANSOPRAZOLE
     Indication: PRODUCT USED FOR UNKNOWN INDICATION
     Dosage: UNK
     Route: 048
     Dates: start: 200005, end: 200403

REACTIONS (6)
  - Cataract [Unknown]
  - Stevens-Johnson syndrome [Unknown]
  - Oesophageal ulcer [Unknown]
  - Corneal opacity [Unknown]
  - Erythema multiforme [Unknown]
  - Visual impairment [Unknown]
